FAERS Safety Report 18118840 (Version 1)
Quarter: 2020Q3

REPORT INFORMATION
  Report Type: Spontaneous
  Country: US (occurrence: US)
  Receive Date: 20200806
  Receipt Date: 20200806
  Transmission Date: 20201103
  Serious: Yes (Hospitalization)
  Sender: FDA-Public Use
  Company Number: None

PATIENT
  Age: 70 Year
  Sex: Male
  Weight: 83.9 kg

DRUGS (2)
  1. DAUNORUBICIN [Suspect]
     Active Substance: DAUNORUBICIN
     Dates: end: 20200726
  2. CYTARABINE. [Suspect]
     Active Substance: CYTARABINE
     Dates: end: 20200731

REACTIONS (17)
  - Epistaxis [None]
  - Electrocardiogram QT prolonged [None]
  - Fluid overload [None]
  - Chest X-ray abnormal [None]
  - Lung opacity [None]
  - Febrile neutropenia [None]
  - Tachypnoea [None]
  - Aspiration [None]
  - Pyrexia [None]
  - Respiratory failure [None]
  - Acute respiratory distress syndrome [None]
  - Orthostatic hypotension [None]
  - Atrial fibrillation [None]
  - Pneumonia [None]
  - Transfusion-related acute lung injury [None]
  - Pulmonary oedema [None]
  - Transfusion-related circulatory overload [None]

NARRATIVE: CASE EVENT DATE: 20200731
